FAERS Safety Report 13447406 (Version 1)
Quarter: 2017Q2

REPORT INFORMATION
  Report Type: Spontaneous
  Country: US (occurrence: US)
  Receive Date: 20170416
  Receipt Date: 20170416
  Transmission Date: 20170830
  Serious: Yes (Disabling)
  Sender: FDA-Public Use
  Company Number: None

PATIENT
  Age: 28 Year
  Sex: Female
  Weight: 49.5 kg

DRUGS (5)
  1. MULTI VITAMINS [Concomitant]
     Active Substance: VITAMINS
  2. VITAMIN B [Concomitant]
     Active Substance: VITAMIN B
  3. LORAZEPAM. [Concomitant]
     Active Substance: LORAZEPAM
  4. FLAGYL [Suspect]
     Active Substance: METRONIDAZOLE\METRONIDAZOLE HYDROCHLORIDE
     Indication: CHLAMYDIA TEST POSITIVE
     Route: 048
     Dates: start: 20160331, end: 20160405
  5. VITAMIN D [Concomitant]
     Active Substance: CHOLECALCIFEROL

REACTIONS (2)
  - Malaise [None]
  - Clostridium difficile infection [None]

NARRATIVE: CASE EVENT DATE: 20160401
